FAERS Safety Report 9965782 (Version 1)
Quarter: 2014Q1

REPORT INFORMATION
  Report Type: Report from Study
  Country: US (occurrence: US)
  Receive Date: 20140305
  Receipt Date: 20140305
  Transmission Date: 20141002
  Serious: Yes (Other)
  Sender: FDA-Public Use
  Company Number: US-ABBVIE-13P-163-1123446-00

PATIENT
  Age: 31 Year
  Sex: Female

DRUGS (8)
  1. HUMIRA [Suspect]
     Indication: CROHN^S DISEASE
     Dates: start: 2006, end: 201103
  2. HUMIRA [Suspect]
     Dates: start: 201107, end: 201303
  3. HUMIRA [Suspect]
     Dates: start: 20130521
  4. MIRENA [Concomitant]
     Indication: CONTRACEPTION
  5. BIOTIN [Concomitant]
     Indication: VITAMIN SUPPLEMENTATION
  6. IRON [Concomitant]
     Indication: ANAEMIA
  7. MAGNESIUM [Concomitant]
     Indication: PRODUCT USED FOR UNKNOWN INDICATION
     Dosage: DAILY
     Route: 048
  8. FOLIC ACID [Concomitant]
     Indication: PRODUCT USED FOR UNKNOWN INDICATION

REACTIONS (3)
  - Crohn^s disease [Not Recovered/Not Resolved]
  - Mesenteric artery thrombosis [Unknown]
  - Alopecia [Unknown]
